FAERS Safety Report 7762937-5 (Version None)
Quarter: 2011Q3

REPORT INFORMATION
  Report Type: 
  Country: None (occurrence: None)
  Receive Date: 20110920
  Receipt Date: 20110912
  Transmission Date: 20111222
  Serious: Yes (Disabling)
  Sender: FDA-Public Use
  Company Number: PHHY2011GB80981

PATIENT
  Age: 73 Year
  Sex: Female
  Weight: 99 kg

DRUGS (16)
  1. ACETAMINOPHEN AND CODEINE PHOSPHATE [Concomitant]
     Dates: start: 20110715, end: 20110720
  2. ACETAMINOPHEN [Concomitant]
     Dosage: UNK
     Dates: start: 20110802, end: 20110812
  3. RANITIDINE [Concomitant]
     Dates: start: 20110627
  4. SIMVASTATIN [Concomitant]
     Dates: start: 20110531
  5. STARCH [Concomitant]
     Dates: start: 20110601
  6. TIMODINE [Concomitant]
     Dates: start: 20110628, end: 20110705
  7. RISPERIDONE [Suspect]
     Dates: start: 20110512
  8. CEPHALEXIN [Concomitant]
     Dates: start: 20110627, end: 20110704
  9. NITROFURANTOIN [Concomitant]
     Dates: start: 20110715
  10. RAMIPRIL [Concomitant]
     Dates: start: 20110601
  11. DIAZEPAM [Concomitant]
     Dates: start: 20110601
  12. LAXIDO [Concomitant]
     Dates: start: 20110805, end: 20110806
  13. LEVOTHYROXINE SODIUM [Concomitant]
     Dates: start: 20110617
  14. ASPIRIN [Concomitant]
     Dates: start: 20110601, end: 20110629
  15. AMOXICILLIN [Concomitant]
     Dates: start: 20110824, end: 20110831
  16. DIPYRIDAMOLE [Concomitant]
     Dates: start: 20110606

REACTIONS (4)
  - AGITATION [None]
  - MALAISE [None]
  - SCHIZOPHRENIA, PARANOID TYPE [None]
  - HYPOTHERMIA [None]
